FAERS Safety Report 9837200 (Version 1)
Quarter: 2013Q4

REPORT INFORMATION
  Report Type: Spontaneous
  Country: US (occurrence: None)
  Receive Date: 20131205
  Receipt Date: 20131205
  Transmission Date: 20140711
  Serious: No
  Sender: FDA-Public Use
  Company Number: 163-POMAL-13090099

PATIENT
  Age: 78 Year
  Sex: Male

DRUGS (5)
  1. POMALYST (POMALIDOMIDE) (4 MILLIGRAM, CAPSULES) [Suspect]
     Indication: PLASMA CELL MYELOMA
     Dosage: 3MG, 21 IN 28D, PO
     Route: 048
     Dates: start: 20130815, end: 20130820
  2. ALLOPURINOL (ALLOPURINOL) [Concomitant]
  3. ASA (ACETYLSALICYLIC ACID) [Concomitant]
  4. COUMADIN (WARFARIN SODIUM) [Concomitant]
  5. DEXAMETHASONE (DEXAMETHASONE) [Concomitant]

REACTIONS (1)
  - Hypersensitivity [None]
